FAERS Safety Report 6964369-6 (Version None)
Quarter: 2010Q3

REPORT INFORMATION
  Report Type: 
  Country: None (occurrence: None)
  Receive Date: 20100903
  Receipt Date: 20100830
  Transmission Date: 20110219
  Serious: Yes (Other)
  Sender: FDA-Public Use
  Company Number: US-ASTRAZENECA-2007UW14886

PATIENT
  Age: 15655 Day
  Sex: Male
  Weight: 133.8 kg

DRUGS (37)
  1. SEROQUEL [Suspect]
     Indication: SLEEP DISORDER
     Dosage: 25-400 MG
     Route: 048
     Dates: start: 20020101, end: 20070101
  2. SEROQUEL [Suspect]
     Indication: SCHIZOAFFECTIVE DISORDER BIPOLAR TYPE
     Dosage: 25-400 MG
     Route: 048
     Dates: start: 20020101, end: 20070101
  3. SEROQUEL [Suspect]
     Indication: BIPOLAR DISORDER
     Dosage: 25-400 MG
     Route: 048
     Dates: start: 20020101, end: 20070101
  4. SEROQUEL [Suspect]
     Indication: SCHIZOPHRENIA
     Dosage: 25-400 MG
     Route: 048
     Dates: start: 20020101, end: 20070101
  5. SEROQUEL [Suspect]
     Dosage: 100-900 MG
     Route: 048
     Dates: start: 20030120
  6. SEROQUEL [Suspect]
     Dosage: 100-900 MG
     Route: 048
     Dates: start: 20030120
  7. SEROQUEL [Suspect]
     Dosage: 100-900 MG
     Route: 048
     Dates: start: 20030120
  8. SEROQUEL [Suspect]
     Dosage: 100-900 MG
     Route: 048
     Dates: start: 20030120
  9. SEROQUEL [Suspect]
     Dosage: 300-400MG
     Route: 048
  10. SEROQUEL [Suspect]
     Dosage: 300-400MG
     Route: 048
  11. SEROQUEL [Suspect]
     Dosage: 300-400MG
     Route: 048
  12. SEROQUEL [Suspect]
     Dosage: 300-400MG
     Route: 048
  13. SEROQUEL [Suspect]
     Route: 048
     Dates: start: 20020401
  14. SEROQUEL [Suspect]
     Route: 048
     Dates: start: 20020401
  15. SEROQUEL [Suspect]
     Route: 048
     Dates: start: 20020401
  16. SEROQUEL [Suspect]
     Route: 048
     Dates: start: 20020401
  17. SEROQUEL [Suspect]
     Route: 048
     Dates: start: 20070501
  18. SEROQUEL [Suspect]
     Route: 048
     Dates: start: 20070501
  19. SEROQUEL [Suspect]
     Route: 048
     Dates: start: 20070501
  20. SEROQUEL [Suspect]
     Route: 048
     Dates: start: 20070501
  21. ZOCOR [Concomitant]
     Dates: start: 20030124
  22. GLUCOVANCE [Concomitant]
     Dosage: 500/2.5 MG
     Dates: start: 20030127
  23. AVANDIA [Concomitant]
     Dates: start: 20030107
  24. ALTACE [Concomitant]
     Dates: start: 20030120
  25. CELEXA [Concomitant]
     Dosage: 20-30 MG
     Dates: start: 20030107
  26. CELEXA [Concomitant]
     Dates: start: 20060101
  27. NEURONTIN [Concomitant]
     Indication: DIABETIC NEUROPATHY
     Dosage: 300-600 MG
     Dates: start: 20030303
  28. ALLEGRA D 24 HOUR [Concomitant]
     Dosage: 12 HRS
     Dates: start: 20030212
  29. ABILIFY [Concomitant]
     Dates: start: 20041202
  30. ABILIFY [Concomitant]
     Dates: start: 20040101, end: 20050101
  31. CYMBALTA [Concomitant]
     Dosage: 30-60 MG
     Dates: start: 20041202
  32. CYMBALTA [Concomitant]
     Dates: start: 20040101, end: 20050101
  33. METFORMIN [Concomitant]
     Dates: start: 20041202
  34. NAPROXEN [Concomitant]
     Dates: start: 20041202
  35. AUGMENTIN XR [Concomitant]
     Dosage: 2 IN MORNING AND 2 IN AFTERNOON
     Dates: start: 20060217
  36. DECONSAL II [Concomitant]
     Dosage: 1 PO BID
     Route: 048
     Dates: start: 20060217
  37. VICOPROFEN [Concomitant]
     Dosage: 6-8 HRS,PRN
     Route: 048
     Dates: start: 20060217

REACTIONS (4)
  - DIABETIC NEUROPATHY [None]
  - DIABETIC RETINOPATHY [None]
  - TYPE 1 DIABETES MELLITUS [None]
  - TYPE 2 DIABETES MELLITUS [None]
